FAERS Safety Report 15885164 (Version 3)
Quarter: 2020Q1

REPORT INFORMATION
  Report Type: Report from Study
  Country: UG (occurrence: UG)
  Receive Date: 20190129
  Receipt Date: 20200302
  Transmission Date: 20200409
  Serious: Yes (Hospitalization, Congenital Anomaly, Other)
  Sender: FDA-Public Use
  Company Number: UG-VIIV HEALTHCARE LIMITED-UG2018GSK083923

PATIENT
  Sex: Female
  Weight: 2.63 kg

DRUGS (4)
  1. NEVIRAPINE SUSPENSION [Concomitant]
     Dosage: 1.5 ML
     Dates: start: 20180914, end: 201812
  2. DOLUTEGRAVIR [Suspect]
     Active Substance: DOLUTEGRAVIR
     Indication: HIV INFECTION
     Dosage: 50 MG, 1D
     Route: 064
     Dates: start: 20180320
  3. LAMIVUDINE + TENOFOVIR DISOPROXIL FUMARATE [Concomitant]
     Active Substance: LAMIVUDINE\TENOFOVIR DISOPROXIL FUMARATE
     Indication: HIV INFECTION
     Dosage: 300/300 MG 1D
     Route: 064
     Dates: start: 20180320
  4. NEVIRAPINE SUSPENSION [Concomitant]
     Dosage: 1.5 ML, QD
     Route: 048
     Dates: start: 20180426

REACTIONS (2)
  - Sepsis neonatal [Recovered/Resolved]
  - Congenital umbilical hernia [Not Recovered/Not Resolved]

NARRATIVE: CASE EVENT DATE: 20180425
